FAERS Safety Report 5085080-5 (Version None)
Quarter: 2006Q3

REPORT INFORMATION
  Report Type: 
  Country: None (occurrence: None)
  Receive Date: 20060816
  Receipt Date: 20060804
  Transmission Date: 20061208
  Serious: Yes (Death, Hospitalization)
  Sender: FDA-Public Use
  Company Number: 2006AP000575

PATIENT
  Age: 63 Year
  Sex: Female

DRUGS (4)
  1. CARBAMAZEPINE [Suspect]
     Indication: POST-TRAUMATIC EPILEPSY
     Dosage: PO
     Route: 048
  2. VALPROATE SODIUM [Suspect]
     Indication: POST-TRAUMATIC EPILEPSY
  3. METHYLPREDNISOLONE [Concomitant]
  4. ANTIBIOTICS (ANTIBIOTICS) [Concomitant]

REACTIONS (16)
  - ACUTE ABDOMEN [None]
  - ADRENAL INSUFFICIENCY [None]
  - BLOOD CREATININE INCREASED [None]
  - BLOOD POTASSIUM INCREASED [None]
  - BLOOD UREA INCREASED [None]
  - CONVULSION [None]
  - DIARRHOEA [None]
  - HYPOTENSION [None]
  - HYPOTHALAMO-PITUITARY DISORDERS [None]
  - INAPPROPRIATE ANTIDIURETIC HORMONE SECRETION [None]
  - MULTI-ORGAN FAILURE [None]
  - PITUITARY TUMOUR [None]
  - POST PROCEDURAL COMPLICATION [None]
  - RECTAL HAEMORRHAGE [None]
  - SEPTIC SHOCK [None]
  - TONSILLITIS [None]
